FAERS Safety Report 23441776 (Version 1)
Quarter: 2024Q1

REPORT INFORMATION
  Report Type: Spontaneous
  Country: US (occurrence: US)
  Receive Date: 20240125
  Receipt Date: 20240125
  Transmission Date: 20240410
  Serious: Yes (Life-Threatening, Other)
  Sender: FDA-Public Use
  Company Number: US-SUN PHARMACEUTICAL INDUSTRIES LTD-2024R1-428311

PATIENT
  Age: 22 Year
  Sex: Male

DRUGS (2)
  1. BUPROPION [Suspect]
     Active Substance: BUPROPION
     Indication: Antidepressant therapy
     Dosage: UNK, 45 MG-105 MG
     Route: 065
  2. DEXTROMETHORPHAN [Suspect]
     Active Substance: DEXTROMETHORPHAN
     Indication: Antidepressant therapy
     Dosage: UNK, 45 MG-105 MG
     Route: 065

REACTIONS (5)
  - Intentional overdose [Unknown]
  - Depressed level of consciousness [Unknown]
  - Hallucinations, mixed [Recovered/Resolved]
  - Dysarthria [Unknown]
  - Sinus tachycardia [Recovering/Resolving]
